FAERS Safety Report 24659134 (Version 1)
Quarter: 2024Q4

REPORT INFORMATION
  Report Type: Spontaneous
  Country: TR (occurrence: TR)
  Receive Date: 20241125
  Receipt Date: 20241125
  Transmission Date: 20250115
  Serious: Yes (Hospitalization)
  Sender: EXELIXIS
  Company Number: TR-IPSEN Group, Research and Development-2024-23473

PATIENT
  Age: 42 Year
  Sex: Female
  Weight: 54 kg

DRUGS (1)
  1. CABOMETYX [Suspect]
     Active Substance: CABOZANTINIB S-MALATE
     Indication: Metastatic renal cell carcinoma
     Dosage: TOOK 60 MG CABOMETYX AS 3X1 DOSES, PRESCRIBED 1X1
     Route: 048
     Dates: start: 20241104, end: 20241109

REACTIONS (7)
  - Pyrexia [Unknown]
  - Nausea [Unknown]
  - Fatigue [Unknown]
  - Blood lactate dehydrogenase increased [Unknown]
  - Aspartate aminotransferase increased [Unknown]
  - Alanine aminotransferase increased [Unknown]
  - Accidental overdose [Unknown]

NARRATIVE: CASE EVENT DATE: 20241104
